FAERS Safety Report 17793325 (Version 20)
Quarter: 2022Q2

REPORT INFORMATION
  Report Type: Report from Study
  Country: CA (occurrence: CA)
  Receive Date: 20200515
  Receipt Date: 20220412
  Transmission Date: 20220721
  Serious: Yes (Hospitalization, Other)
  Sender: FDA-Public Use
  Company Number: PHHY2018CA014276

PATIENT
  Sex: Female

DRUGS (11)
  1. SANDOSTATIN [Suspect]
     Active Substance: OCTREOTIDE ACETATE
     Indication: Carcinoid tumour
     Dosage: UNK, ONCE/SINGLE (TEST DOSE)
     Route: 058
     Dates: start: 20161205, end: 20161205
  2. SANDOSTATIN [Suspect]
     Active Substance: OCTREOTIDE ACETATE
  3. SANDOSTATIN [Suspect]
     Active Substance: OCTREOTIDE ACETATE
  4. SANDOSTATIN LAR DEPOT [Suspect]
     Active Substance: OCTREOTIDE ACETATE
     Indication: Carcinoid tumour
     Dosage: 40 MG, Q3W
     Route: 030
     Dates: start: 20161217, end: 20190111
  5. SANDOSTATIN LAR DEPOT [Suspect]
     Active Substance: OCTREOTIDE ACETATE
     Dosage: 30 MG, Q3W
     Route: 030
     Dates: start: 20200512
  6. SANDOSTATIN LAR DEPOT [Suspect]
     Active Substance: OCTREOTIDE ACETATE
     Dosage: 30 MG, Q4W
     Route: 030
     Dates: start: 20211028
  7. SANDOSTATIN LAR DEPOT [Suspect]
     Active Substance: OCTREOTIDE ACETATE
     Dosage: 30 MG (6 WEEKS)
     Route: 030
     Dates: start: 20220106
  8. SANDOSTATIN LAR DEPOT [Suspect]
     Active Substance: OCTREOTIDE ACETATE
     Dosage: 30 MG, Q4W (Q28 DAYS)
     Route: 030
     Dates: start: 20220407
  9. OCTREOTIDE [Concomitant]
     Active Substance: OCTREOTIDE
     Indication: Diarrhoea
     Dosage: 100 UG, TID
     Route: 058
  10. HYDROCHLOROTHIAZIDE [Concomitant]
     Active Substance: HYDROCHLOROTHIAZIDE
     Indication: Blood pressure measurement
     Dosage: 0.5 DF, QD
     Route: 065
     Dates: start: 2018
  11. HYDROCHLOROTHIAZIDE [Concomitant]
     Active Substance: HYDROCHLOROTHIAZIDE
     Dosage: UNK QD
     Route: 065
     Dates: start: 2018

REACTIONS (21)
  - Hip fracture [Unknown]
  - Urinary tract infection [Unknown]
  - Fall [Unknown]
  - Blood pressure systolic increased [Unknown]
  - Anxiety [Unknown]
  - Weight increased [Unknown]
  - Pollakiuria [Unknown]
  - Eating disorder [Unknown]
  - Blood pressure increased [Unknown]
  - Pallor [Unknown]
  - Weight decreased [Unknown]
  - Blood pressure diastolic increased [Unknown]
  - Decreased appetite [Unknown]
  - Abdominal pain lower [Not Recovered/Not Resolved]
  - Asthenia [Unknown]
  - Abdominal pain [Recovered/Resolved]
  - Pain [Unknown]
  - Injection site pain [Unknown]
  - Injection site bruising [Unknown]
  - Injection site swelling [Not Recovered/Not Resolved]
  - Inappropriate schedule of product administration [Unknown]

NARRATIVE: CASE EVENT DATE: 20180101
